FAERS Safety Report 13037190 (Version 6)
Quarter: 2017Q1

REPORT INFORMATION
  Report Type: Report from Study
  Country: US (occurrence: US)
  Receive Date: 20161216
  Receipt Date: 20170228
  Transmission Date: 20170428
  Serious: Yes (Hospitalization, Other)
  Sender: FDA-Public Use
  Company Number: US-MALLINCKRODT-T201606320

PATIENT
  Age: 63 Year
  Sex: Female

DRUGS (5)
  1. PREDNISONE. [Suspect]
     Active Substance: PREDNISONE
     Indication: PRODUCT USED FOR UNKNOWN INDICATION
     Dosage: 30 MG, UNK
  2. PREDNISONE. [Suspect]
     Active Substance: PREDNISONE
     Dosage: 30 MG, UNK
     Route: 065
     Dates: start: 2017
  3. PREDNISONE. [Suspect]
     Active Substance: PREDNISONE
     Dosage: 60 MG, UNK
  4. REPOSITORY CORTICOTROPIN INJECTION [Suspect]
     Active Substance: CORTICOTROPIN
     Indication: SARCOIDOSIS
     Dosage: 60 UNITS / 0.75 ML, EVERY OTHER DAY
     Route: 058
     Dates: start: 20160407
  5. REPOSITORY CORTICOTROPIN INJECTION [Suspect]
     Active Substance: CORTICOTROPIN
     Dosage: 60 UNITS / 0.75 ML, EVERY OTHER DAY
     Route: 058
     Dates: start: 20160407

REACTIONS (10)
  - Feeling jittery [Unknown]
  - Dyspnoea [Unknown]
  - Diverticulitis [Unknown]
  - Malaise [Unknown]
  - Wheezing [Unknown]
  - Osteoporosis [Unknown]
  - Back pain [Not Recovered/Not Resolved]
  - Multiple fractures [Unknown]
  - Dry skin [Unknown]
  - Respiration abnormal [Unknown]

NARRATIVE: CASE EVENT DATE: 20161219
